FAERS Safety Report 7138740-6 (Version None)
Quarter: 2010Q4

REPORT INFORMATION
  Report Type: 
  Country: None (occurrence: None)
  Receive Date: 20101206
  Receipt Date: 20101130
  Transmission Date: 20110411
  Serious: Yes (Hospitalization, Other)
  Sender: FDA-Public Use
  Company Number: US-PFIZER INC-2010161292

PATIENT
  Sex: Male
  Weight: 90.703 kg

DRUGS (4)
  1. CHANTIX [Suspect]
     Indication: SMOKING CESSATION THERAPY
     Dosage: 0.5 MG, 1X/DAY
     Route: 048
     Dates: start: 20080501, end: 20080101
  2. CHANTIX [Suspect]
     Dosage: UNK
     Route: 048
     Dates: start: 20101101
  3. VITAMINS [Concomitant]
     Dosage: UNK
     Route: 048
  4. FISH OIL [Concomitant]
     Dosage: UNK
     Route: 048

REACTIONS (4)
  - ANGER [None]
  - DEPRESSION [None]
  - PAIN [None]
  - SELF INJURIOUS BEHAVIOUR [None]
